FAERS Safety Report 12648621 (Version 1)
Quarter: 2016Q3

REPORT INFORMATION
  Report Type: Spontaneous
  Country: US (occurrence: US)
  Receive Date: 20160812
  Receipt Date: 20160812
  Transmission Date: 20161109
  Serious: Yes (Other)
  Sender: FDA-Public Use
  Company Number: US-TEVA-681959USA

PATIENT
  Age: 31 Year
  Sex: Female
  Weight: 68.1 kg

DRUGS (3)
  1. CAMRESE [Suspect]
     Active Substance: ETHINYL ESTRADIOL\LEVONORGESTREL
     Indication: CONTRACEPTION
     Dates: start: 2016, end: 20160728
  2. VITAMIN B12 [Concomitant]
     Active Substance: CYANOCOBALAMIN
     Route: 065
  3. MAGNESIUM [Concomitant]
     Active Substance: MAGNESIUM
     Route: 065

REACTIONS (11)
  - Heart rate increased [Not Recovered/Not Resolved]
  - Oligomenorrhoea [Recovered/Resolved]
  - Weight decreased [Not Recovered/Not Resolved]
  - Hypertension [Unknown]
  - Feeling abnormal [Unknown]
  - Dyspnoea [Recovered/Resolved]
  - Asthenia [Unknown]
  - Pulmonary embolism [Unknown]
  - Palpitations [Recovered/Resolved]
  - Vaginal haemorrhage [Unknown]
  - Inappropriate schedule of drug administration [Unknown]

NARRATIVE: CASE EVENT DATE: 2016
